FAERS Safety Report 17045751 (Version 5)
Quarter: 2020Q2

REPORT INFORMATION
  Report Type: Report from Study
  Country: US (occurrence: US)
  Receive Date: 20191118
  Receipt Date: 20200421
  Transmission Date: 20200713
  Serious: Yes (Other)
  Sender: FDA-Public Use
  Company Number: NVSC2019US038481

PATIENT
  Sex: Female

DRUGS (2)
  1. PIQRAY [Suspect]
     Active Substance: ALPELISIB
     Indication: PRODUCT USED FOR UNKNOWN INDICATION
     Dosage: UNK
     Route: 048
  2. PIQRAY [Suspect]
     Active Substance: ALPELISIB
     Route: 065

REACTIONS (16)
  - Neoplasm progression [Unknown]
  - Nausea [Unknown]
  - Stomatitis [Recovered/Resolved]
  - Abdominal discomfort [Unknown]
  - Deafness [Unknown]
  - Oral candidiasis [Unknown]
  - Diarrhoea [Unknown]
  - Sticky skin [Unknown]
  - Weight decreased [Unknown]
  - Oral pain [Unknown]
  - Fatigue [Unknown]
  - Neuropathy peripheral [Unknown]
  - Dizziness [Unknown]
  - Rash [Unknown]
  - Headache [Unknown]
  - Blood glucose increased [Unknown]
